FAERS Safety Report 6557597-5 (Version None)
Quarter: 2010Q1

REPORT INFORMATION
  Report Type: 
  Country: None (occurrence: None)
  Receive Date: 20100129
  Receipt Date: 20100119
  Transmission Date: 20100710
  Serious: Yes (Other)
  Sender: FDA-Public Use
  Company Number: PHEH2010US01140

PATIENT
  Age: 72 Year
  Sex: Female

DRUGS (1)
  1. RECLAST [Suspect]
     Dosage: UNK
     Dates: start: 20091101

REACTIONS (12)
  - ARTHRITIS [None]
  - ASTHENIA [None]
  - BEDRIDDEN [None]
  - DYSPHAGIA [None]
  - FEELINGS OF WORTHLESSNESS [None]
  - IMPAIRED DRIVING ABILITY [None]
  - MUSCLE SPASMS [None]
  - MUSCULOSKELETAL DISCOMFORT [None]
  - MYALGIA [None]
  - NASAL SEPTUM DEVIATION [None]
  - OESOPHAGEAL DILATATION [None]
  - PAIN [None]
